FAERS Safety Report 7997701-5 (Version None)
Quarter: 2011Q4

REPORT INFORMATION
  Report Type: 
  Country: None (occurrence: None)
  Receive Date: 20111221
  Receipt Date: 20111206
  Transmission Date: 20120403
  Serious: Yes (Hospitalization)
  Sender: FDA-Public Use
  Company Number: IT-ROCHE-1023202

PATIENT
  Sex: Female
  Weight: 83 kg

DRUGS (4)
  1. TORSEMIDE [Concomitant]
     Dates: start: 20060101, end: 20111201
  2. PLAUNAC [Concomitant]
     Dates: start: 20060101, end: 20111201
  3. METFORMIN HCL [Concomitant]
     Dates: start: 19960101, end: 20111201
  4. RANIBIZUMAB [Suspect]
     Indication: DIABETIC RETINAL OEDEMA
     Dosage: INTRVETREAL INJECTION, LAST DOSE PRIOR TO SAE WAS ON 26/OCT/2011
     Route: 050
     Dates: start: 20110324

REACTIONS (3)
  - TRANSIENT ISCHAEMIC ATTACK [None]
  - DIABETES MELLITUS [None]
  - HYPERTENSION [None]
